FAERS Safety Report 5746000-0 (Version None)
Quarter: 2008Q2

REPORT INFORMATION
  Report Type: 
  Country: None (occurrence: None)
  Receive Date: 20080522
  Receipt Date: 20080513
  Transmission Date: 20081010
  Serious: Yes (Other)
  Sender: FDA-Public Use
  Company Number: PT-RANBAXY-2008RR-15166

PATIENT

DRUGS (3)
  1. CIPROFLOXACINA RANBAXY 500 MG COMPRIMIDOS REVESTIDOS [Suspect]
     Indication: URINARY TRACT INFECTION
     Dosage: 1000 MG, UNK
     Route: 048
     Dates: start: 20080331, end: 20080401
  2. GESTODENE [Concomitant]
     Indication: CONTRACEPTION
     Route: 048
  3. ETINILESTRADIOL [Concomitant]
     Indication: CONTRACEPTION
     Route: 048

REACTIONS (5)
  - APHTHOUS STOMATITIS [None]
  - CHAPPED LIPS [None]
  - EYELID OEDEMA [None]
  - LIP DRY [None]
  - LIP OEDEMA [None]
